FAERS Safety Report 8904647 (Version 1)
Quarter: 2012Q4

REPORT INFORMATION
  Report Type: 
  Country: US (occurrence: US)
  Receive Date: 20121113
  Receipt Date: 20121113
  Transmission Date: 20130627
  Serious: No
  Sender: FDA-Public Use
  Company Number: US-GLAXOSMITHKLINE-A0946196A

PATIENT
  Age: 52 Year
  Sex: Female

DRUGS (2)
  1. CARVEDILOL [Suspect]
     Indication: HYPERTENSION
     Dosage: 25MG Twice per day
     Route: 048
     Dates: start: 20110801, end: 20110830
  2. PREDNISONE [Concomitant]

REACTIONS (2)
  - Condition aggravated [Recovered/Resolved]
  - Cardiac flutter [Unknown]
